FAERS Safety Report 9323276 (Version 1)
Quarter: 2013Q2

REPORT INFORMATION
  Report Type: Spontaneous
  Country: US (occurrence: US)
  Receive Date: 20130603
  Receipt Date: 20130603
  Transmission Date: 20140414
  Serious: Yes (Hospitalization)
  Sender: FDA-Public Use
  Company Number: US-B.I. PHARMACEUTICALS,INC./RIDGEFIELD-2013-BI-13019BP

PATIENT
  Age: 64 Year
  Sex: Male
  Weight: 87.09 kg

DRUGS (6)
  1. PRADAXA [Suspect]
     Indication: ANTICOAGULANT THERAPY
     Dates: start: 20110930, end: 20111105
  2. LEVEMIR [Concomitant]
     Route: 058
  3. METOPROLOL [Concomitant]
     Route: 048
  4. CARDIZEM [Concomitant]
     Route: 048
  5. LIPITOR [Concomitant]
     Route: 048
  6. FENOFIBRATE [Concomitant]
     Route: 048

REACTIONS (1)
  - Gastrointestinal haemorrhage [Recovered/Resolved]
